FAERS Safety Report 14035606 (Version 2)
Quarter: 2017Q4

REPORT INFORMATION
  Report Type: Spontaneous
  Country: US (occurrence: US)
  Receive Date: 20171003
  Receipt Date: 20171116
  Transmission Date: 20180321
  Serious: Yes (Hospitalization)
  Sender: FDA-Public Use
  Company Number: US-ACTELION-A-US2017-160279

PATIENT
  Age: 67 Year
  Sex: Female
  Weight: 92.97 kg

DRUGS (3)
  1. ADCIRCA [Concomitant]
     Active Substance: TADALAFIL
  2. AMLODIPINE [Concomitant]
     Active Substance: AMLODIPINE BESYLATE
  3. VELETRI [Suspect]
     Active Substance: EPOPROSTENOL
     Indication: PULMONARY ARTERIAL HYPERTENSION
     Dosage: 25 NG/KG, PER MIN
     Route: 042

REACTIONS (7)
  - Lethargy [Unknown]
  - Malaise [Unknown]
  - Confusional state [Unknown]
  - Drug administration error [Unknown]
  - Loss of consciousness [Unknown]
  - Pneumonia [Unknown]
  - Oxygen consumption increased [Unknown]
